FAERS Safety Report 4839553-8 (Version None)
Quarter: 2005Q4

REPORT INFORMATION
  Report Type: 
  Country: None (occurrence: None)
  Receive Date: 20051128
  Receipt Date: 20051128
  Transmission Date: 20060501
  Serious: Yes (Hospitalization)
  Sender: FDA-Public Use
  Company Number: None

PATIENT
  Age: 75 Year
  Sex: Male
  Weight: 69 kg

DRUGS (14)
  1. UROXATRAL [Suspect]
     Indication: BENIGN PROSTATIC HYPERPLASIA
     Dosage: 10MG   QD    PO
     Route: 048
     Dates: start: 20051117, end: 20051118
  2. ECOTRIN [Concomitant]
  3. PROSCAR [Concomitant]
  4. AMIODARONE [Concomitant]
  5. LANTUS [Concomitant]
  6. LOPRESSOR [Concomitant]
  7. NOVOLOG INSULIN SCALE INSULIN [Concomitant]
  8. NYSTATIN [Concomitant]
  9. SYNTHROID [Concomitant]
  10. ALPHAGAN [Concomitant]
  11. DIGOXIN [Concomitant]
  12. COUMADIN [Concomitant]
  13. DOCUSATE CALCIUM [Concomitant]
  14. LOVENOX [Concomitant]

REACTIONS (5)
  - DYSPNOEA [None]
  - ELECTROCARDIOGRAM QRS COMPLEX PROLONGED [None]
  - HYPERHIDROSIS [None]
  - PAIN IN EXTREMITY [None]
  - VENTRICULAR TACHYCARDIA [None]
